FAERS Safety Report 6283084-8 (Version None)
Quarter: 2009Q3

REPORT INFORMATION
  Report Type: 
  Country: None (occurrence: None)
  Receive Date: 20090724
  Receipt Date: 20090715
  Transmission Date: 20100115
  Serious: Yes (Hospitalization)
  Sender: FDA-Public Use
  Company Number: A0749325A

PATIENT
  Age: 69 Year
  Sex: Male
  Weight: 57.7 kg

DRUGS (7)
  1. AVANDIA [Suspect]
     Indication: DIABETES MELLITUS
     Dosage: 4MG TWICE PER DAY
     Route: 048
     Dates: start: 20030101, end: 20080401
  2. METFORMIN HCL [Concomitant]
  3. DIABETA [Concomitant]
  4. SIMVASTATIN [Concomitant]
  5. LAMOTRIGINE [Concomitant]
  6. OMEPRAZOLE [Concomitant]
  7. FLUDROCORTISONE [Concomitant]

REACTIONS (3)
  - CORONARY ARTERY DISEASE [None]
  - HEART INJURY [None]
  - MYOCARDIAL INFARCTION [None]
